FAERS Safety Report 5395130-4 (Version None)
Quarter: 2007Q3

REPORT INFORMATION
  Report Type: 
  Country: None (occurrence: None)
  Receive Date: 20070724
  Receipt Date: 20070713
  Transmission Date: 20080115
  Serious: Yes (Hospitalization)
  Sender: FDA-Public Use
  Company Number: FR-JNJFOC-20070703388

PATIENT
  Age: 60 Year
  Sex: Female

DRUGS (5)
  1. RISPERDAL [Suspect]
     Route: 048
  2. RISPERDAL [Suspect]
     Route: 048
  3. RISPERDAL [Suspect]
     Indication: DELUSION
     Route: 048
  4. TRAMADOL HCL [Concomitant]
  5. EFFERALGAN CODEINE [Concomitant]

REACTIONS (1)
  - LOSS OF CONSCIOUSNESS [None]
